FAERS Safety Report 4811784-2 (Version None)
Quarter: 2005Q4

REPORT INFORMATION
  Report Type: 
  Country: None (occurrence: None)
  Receive Date: 20051027
  Receipt Date: 20051027
  Transmission Date: 20060501
  Serious: Yes (Hospitalization)
  Sender: FDA-Public Use
  Company Number: None

PATIENT
  Age: 67 Year
  Sex: Male
  Weight: 110.7 kg

DRUGS (14)
  1. DICLOFENAC [Suspect]
     Indication: PAIN
     Dosage: 150MG,75MG BID,ORAL
     Route: 048
     Dates: start: 20041022, end: 20050722
  2. DICLOFENAC SODIUM [Concomitant]
  3. MISOPROSTOL [Concomitant]
  4. ALLOPURINOL [Concomitant]
  5. GLIPIZIDE [Concomitant]
  6. LISINOPRIL [Concomitant]
  7. RANITIDINE HCL [Concomitant]
  8. TERAZOSIN HCL [Concomitant]
  9. ROSIGLITAZONE MALEATE [Concomitant]
  10. LORATADINE [Concomitant]
  11. HYDROCHLOROTHIAZIDE [Concomitant]
  12. HYDROCODONE 5/ACETAMINOPHEN [Concomitant]
  13. METOPROLOL TARTRATE [Concomitant]
  14. SIMVASTATIN [Concomitant]

REACTIONS (1)
  - GASTROINTESTINAL HAEMORRHAGE [None]
